FAERS Safety Report 17052449 (Version 1)
Quarter: 2019Q4

REPORT INFORMATION
  Report Type: Report from Study
  Country: CN (occurrence: CN)
  Receive Date: 20191120
  Receipt Date: 20191120
  Transmission Date: 20200122
  Serious: Yes (Other)
  Sender: FDA-Public Use
  Company Number: CN-ROCHE-2467631

PATIENT

DRUGS (1)
  1. PEGINTERFERON ALFA-2A. [Suspect]
     Active Substance: PEGINTERFERON ALFA-2A
     Indication: CHRONIC HEPATITIS B
     Route: 065

REACTIONS (7)
  - Blood glucose abnormal [Unknown]
  - Thyroid function test abnormal [Unknown]
  - Hepatitis B DNA increased [Unknown]
  - Hepatic function abnormal [Unknown]
  - Antinuclear antibody increased [Unknown]
  - Influenza like illness [Unknown]
  - Bone marrow failure [Unknown]
